FAERS Safety Report 5328765-5 (Version None)
Quarter: 2007Q2

REPORT INFORMATION
  Report Type: 
  Country: None (occurrence: None)
  Receive Date: 20070518
  Receipt Date: 20070511
  Transmission Date: 20071010
  Serious: Yes (Life-Threatening, Hospitalization)
  Sender: FDA-Public Use
  Company Number: FR-GENENTECH-240003

PATIENT
  Sex: Male

DRUGS (8)
  1. RITUXIMAB [Suspect]
     Indication: B-CELL LYMPHOMA
     Dosage: 575 MG/M2, UNK
     Route: 042
  2. CORTANCYL [Suspect]
     Indication: B-CELL LYMPHOMA
     Dosage: 80 MG/M2, QD
     Route: 048
     Dates: start: 20070312, end: 20070316
  3. ENDOXAN [Suspect]
     Indication: B-CELL LYMPHOMA
     Dosage: 1.2 G/M2, UNK
     Route: 042
     Dates: start: 20070312
  4. FARMARUBICINE [Suspect]
     Indication: B-CELL LYMPHOMA
     Dosage: 100 MG/M2, UNK
     Route: 042
     Dates: start: 20070312
  5. ELDISINE [Suspect]
     Indication: B-CELL LYMPHOMA
     Dosage: 3 MG/M2, UNK
     Route: 042
     Dates: start: 20070312
  6. METHOTREXATE [Suspect]
     Indication: B-CELL LYMPHOMA
     Dosage: 15 MG, UNK
     Route: 037
     Dates: start: 20070313, end: 20070313
  7. SOLU-MEDROL [Concomitant]
     Indication: B-CELL LYMPHOMA
     Dosage: 15 MG, UNK
     Route: 037
     Dates: start: 20070313
  8. RIMIFON [Concomitant]
     Indication: DRUG USE FOR UNKNOWN INDICATION
     Dosage: 150 MG, QD

REACTIONS (3)
  - CEREBRAL HAEMATOMA [None]
  - PARANOIA [None]
  - STATUS EPILEPTICUS [None]
